FAERS Safety Report 8367565-9 (Version None)
Quarter: 2012Q1

REPORT INFORMATION
  Report Type: 
  Country: None (occurrence: None)
  Receive Date: 20120323
  Receipt Date: 20111219
  Transmission Date: 20120608
  Serious: Yes (Hospitalization)
  Sender: FDA-Public Use
  Company Number: 163-21880-11080036

PATIENT
  Age: 70 Year
  Sex: Female

DRUGS (24)
  1. LYRICA [Concomitant]
  2. SOLU-MEDROL [Concomitant]
  3. PERCOCET [Concomitant]
  4. LEVOXYL [Concomitant]
  5. ACETYLCYSTEINE [Concomitant]
  6. AMBIEN [Concomitant]
  7. REVLIMID [Suspect]
     Indication: MULTIPLE MYELOMA
     Dosage: 10 MG, DAILY FOR 21 DAYS, PO
     Route: 048
     Dates: start: 20110208, end: 20110913
  8. METOPROLOL TARTRATE [Concomitant]
  9. LEVOTHYROXINE SODIUM [Concomitant]
  10. SYNTHROID [Concomitant]
  11. CALCIUM CARBONATE [Concomitant]
  12. MULTIVITAMIN [Concomitant]
  13. ACETAMINOPHEN [Concomitant]
  14. ATORVASTATIN [Concomitant]
  15. BENZONATATE [Concomitant]
  16. DOCUSATE (DOCUSATE) [Concomitant]
  17. ZOFRAN [Concomitant]
  18. LIPITOR [Concomitant]
  19. LISINOPRIL [Concomitant]
  20. COREG [Concomitant]
  21. OXYCODONE HCL [Concomitant]
  22. LOVENOX [Concomitant]
  23. LANTUS [Concomitant]
  24. INSULIN LISPRO (INSULIN LISPRO) [Concomitant]

REACTIONS (3)
  - PANCYTOPENIA [None]
  - KLEBSIELLA SEPSIS [None]
  - PNEUMONIA [None]
